FAERS Safety Report 9090208 (Version 2)
Quarter: 2013Q1

REPORT INFORMATION
  Report Type: Spontaneous
  Country: IT (occurrence: IT)
  Receive Date: 20130201
  Receipt Date: 20130305
  Transmission Date: 20140127
  Serious: Yes (Hospitalization)
  Sender: FDA-Public Use
  Company Number: IT-ABBOTT-13P-083-1043622-00

PATIENT
  Age: 44 Year
  Sex: Male

DRUGS (3)
  1. DEPAKINE CHRONO [Suspect]
     Indication: SUICIDE ATTEMPT
     Route: 048
     Dates: start: 20121228, end: 20121228
  2. TAVOR [Suspect]
     Indication: SUICIDE ATTEMPT
     Route: 048
     Dates: start: 20121228, end: 20121228
  3. METHADONE [Concomitant]
     Indication: PRODUCT USED FOR UNKNOWN INDICATION

REACTIONS (3)
  - Muscular weakness [Recovered/Resolved]
  - Somnolence [Recovered/Resolved]
  - Overdose [Unknown]
